FAERS Safety Report 5800278-3 (Version None)
Quarter: 2008Q3

REPORT INFORMATION
  Report Type: 
  Country: None (occurrence: None)
  Receive Date: 20080703
  Receipt Date: 20080702
  Transmission Date: 20090109
  Serious: Yes (Death)
  Sender: FDA-Public Use
  Company Number: PHEH2007US13897

PATIENT
  Sex: Male
  Weight: 133.79 kg

DRUGS (6)
  1. EXJADE [Suspect]
     Indication: HAEMOCHROMATOSIS
     Dosage: 2000 MG, QD
     Route: 048
     Dates: start: 20070117, end: 20070913
  2. ASPIRIN [Concomitant]
  3. PRILOSEC [Concomitant]
  4. SYNTHROID [Concomitant]
  5. CRESTOR [Concomitant]
  6. XANAX [Concomitant]

REACTIONS (4)
  - DEVICE RELATED INFECTION [None]
  - KNEE OPERATION [None]
  - RESPIRATORY FAILURE [None]
  - SEPSIS [None]
